FAERS Safety Report 24640037 (Version 1)
Quarter: 2024Q4

REPORT INFORMATION
  Report Type: Spontaneous
  Country: IN (occurrence: IN)
  Receive Date: 20241120
  Receipt Date: 20241120
  Transmission Date: 20250115
  Serious: Yes (Other)
  Sender: DR REDDYS
  Company Number: IN-RDY-LIT/IND/24/0017063

PATIENT
  Age: 51 Year
  Sex: Female

DRUGS (4)
  1. RITUXIMAB [Suspect]
     Active Substance: RITUXIMAB
     Indication: Aplasia pure red cell
     Dosage: FOUR WEEKLY DOSES FROM SUBSEQUENTLY (DAY +180 ONWARD)
  2. BORTEZOMIB [Suspect]
     Active Substance: BORTEZOMIB
     Indication: Aplasia pure red cell
     Dosage: WEEKLY DOSES FROM DAY +326 POST-HSCT FOR THE NEXT 12 WEEKS
  3. DEXAMETHASONE [Concomitant]
     Active Substance: DEXAMETHASONE
     Indication: Aplasia pure red cell
     Dosage: FOR 4 DAYS FROM DAY +259
  4. DARATUMUMAB [Concomitant]
     Active Substance: DARATUMUMAB
     Indication: Aplasia pure red cell
     Dosage: FOUR DOSES (16 MG/KG, WEEKLY) FROM DAY +284

REACTIONS (1)
  - Drug ineffective for unapproved indication [Unknown]
